FAERS Safety Report 4285607-7 (Version None)
Quarter: 2004Q1

REPORT INFORMATION
  Report Type: 
  Country: None (occurrence: None)
  Receive Date: 20040203
  Receipt Date: 20040123
  Transmission Date: 20041129
  Serious: Yes (Other)
  Sender: FDA-Public Use
  Company Number: US064811

PATIENT

DRUGS (1)
  1. ARANESP [Suspect]
     Indication: ANAEMIA OF MALIGNANT DISEASE
     Dosage: 2 IN 1 WEEKS

REACTIONS (3)
  - DYSPNOEA [None]
  - PNEUMONITIS [None]
  - THERAPEUTIC RESPONSE DECREASED [None]
